FAERS Safety Report 4572261-X (Version None)
Quarter: 2005Q1

REPORT INFORMATION
  Report Type: 
  Country: None (occurrence: None)
  Receive Date: 20050203
  Receipt Date: 20050131
  Transmission Date: 20050727
  Serious: Yes (Hospitalization)
  Sender: FDA-Public Use
  Company Number: 200510040BYL

PATIENT
  Age: 75 Year
  Sex: Male
  Weight: 40 kg

DRUGS (6)
  1. ASPIRIN [Suspect]
     Dosage: 100 MG, QD, ORAL
     Route: 048
     Dates: start: 20041022
  2. CARVEDILOL [Suspect]
     Dosage: 2.5 MG, QD, ORAL
     Route: 048
     Dates: start: 20041022
  3. DIOVAN [Suspect]
     Dosage: 80 MG, QD, ORAL
     Route: 048
     Dates: start: 20041210
  4. LASIX [Suspect]
     Dosage: 40 MG, QD, ORAL
     Route: 048
     Dates: start: 20041022
  5. WARFARIN SODIUM [Suspect]
     Dosage: 4 MG, QD, ORAL
     Route: 048
     Dates: start: 20041124
  6. ALLOPURINOL [Suspect]
     Dosage: 100 MG, QD, ORAL
     Route: 048
     Dates: start: 20041210

REACTIONS (3)
  - HEPATIC FUNCTION ABNORMAL [None]
  - PLATELET COUNT DECREASED [None]
  - RASH GENERALISED [None]
